FAERS Safety Report 5629253-9 (Version None)
Quarter: 2008Q1

REPORT INFORMATION
  Report Type: 
  Country: None (occurrence: None)
  Receive Date: 20080217
  Receipt Date: 20080213
  Transmission Date: 20080703
  Serious: Yes (Hospitalization)
  Sender: FDA-Public Use
  Company Number: US-BAXTER-2008BH001377

PATIENT
  Age: 58 Year
  Sex: Male
  Weight: 95 kg

DRUGS (9)
  1. HEPARIN SODIUM [Suspect]
     Indication: STENT PLACEMENT
     Dosage: DOSE UNIT:UNKNOWN
     Route: 065
     Dates: start: 20070810
  2. HEPARIN SODIUM [Suspect]
     Indication: CARDIAC OPERATION
     Dosage: DOSE UNIT:UNKNOWN
     Route: 065
     Dates: start: 20070810
  3. HEPARIN SODIUM [Suspect]
     Dosage: DOSE UNIT:UNKNOWN
     Route: 065
     Dates: start: 20070822
  4. HEPARIN SODIUM [Suspect]
     Dosage: DOSE UNIT:UNKNOWN
     Route: 065
     Dates: start: 20070822
  5. SIMVASTATIN [Concomitant]
     Indication: BLOOD CHOLESTEROL
     Route: 048
     Dates: start: 20070101
  6. PROTONIX [Concomitant]
     Route: 048
     Dates: start: 20070101
  7. TICLOPIDINE HCL [Concomitant]
     Route: 048
  8. PLAVIX [Concomitant]
     Route: 048
     Dates: start: 20070801, end: 20080101
  9. ASPIRIN [Concomitant]
     Route: 048
     Dates: start: 20070801

REACTIONS (7)
  - CHEST PAIN [None]
  - DYSPNOEA [None]
  - HYPERHIDROSIS [None]
  - PERICARDITIS [None]
  - PLATELET COUNT DECREASED [None]
  - PRURITUS [None]
  - URTICARIA [None]
